FAERS Safety Report 16606345 (Version 1)
Quarter: 2019Q3

REPORT INFORMATION
  Report Type: Spontaneous
  Country: CN (occurrence: CN)
  Receive Date: 20190721
  Receipt Date: 20190721
  Transmission Date: 20191004
  Serious: Yes (Other)
  Sender: FDA-Public Use
  Company Number: CN-B.I. PHARMACEUTICALS,INC./RIDGEFIELD-2019-BI-030229

PATIENT
  Age: 53 Year
  Sex: Male
  Weight: 54 kg

DRUGS (2)
  1. PULMICORT TURBUHALER [Concomitant]
     Active Substance: BUDESONIDE
     Indication: BRONCHITIS
     Dosage: DOSAGE FORM: SOLUTION FOR INHALATION
     Route: 055
     Dates: start: 20190714, end: 20190714
  2. COMBIVENT [Suspect]
     Active Substance: ALBUTEROL SULFATE\IPRATROPIUM BROMIDE
     Indication: BRONCHITIS
     Dosage: DOSAGE FORM: SOLUTION FOR INHALATION
     Route: 055
     Dates: start: 20190714, end: 20190714

REACTIONS (2)
  - Seizure [Recovered/Resolved]
  - Tachypnoea [Recovered/Resolved]

NARRATIVE: CASE EVENT DATE: 20190714
